FAERS Safety Report 10376464 (Version 2)
Quarter: 2014Q3

REPORT INFORMATION
  Report Type: Spontaneous
  Country: GB (occurrence: None)
  Receive Date: 20140806
  Receipt Date: 20140814
  Transmission Date: 20150326
  Serious: Yes (Other)
  Sender: FDA-Public Use
  Company Number: SYM-2014-23634

PATIENT
  Age: 72 Year
  Sex: Male

DRUGS (12)
  1. TILDIEM [Suspect]
     Active Substance: DILTIAZEM HYDROCHLORIDE
     Indication: HYPERTENSION
     Route: 048
     Dates: start: 201009
  2. LAMOTRIGINE. [Concomitant]
     Active Substance: LAMOTRIGINE
  3. ATORVASTATIN [Concomitant]
     Active Substance: ATORVASTATIN
  4. BENDROFLUMETHIAZIDE [Concomitant]
     Active Substance: BENDROFLUMETHIAZIDE
  5. CITALOPRAM [Concomitant]
     Active Substance: CITALOPRAM HYDROBROMIDE
  6. TILDIEM [Suspect]
     Active Substance: DILTIAZEM HYDROCHLORIDE
     Indication: CARDIAC DISORDER
     Route: 048
     Dates: start: 201009
  7. CANDESARTAN [Concomitant]
     Active Substance: CANDESARTAN
  8. CLOBAZAM [Concomitant]
     Active Substance: CLOBAZAM
  9. TILDIEM [Suspect]
     Active Substance: DILTIAZEM HYDROCHLORIDE
     Indication: BLOOD PRESSURE
     Route: 048
     Dates: start: 201009
  10. KEPPRA (LEVETIRACETAM) (LEVETIRACETAM) [Concomitant]
  11. RASAGILINE [Concomitant]
     Active Substance: RASAGILINE
  12. SINEMET (LEVODOPA, CARBIDOPA) [Concomitant]

REACTIONS (3)
  - Epilepsy [None]
  - Condition aggravated [None]
  - Product colour issue [None]

NARRATIVE: CASE EVENT DATE: 201406
